FAERS Safety Report 7522473-8 (Version None)
Quarter: 2011Q2

REPORT INFORMATION
  Report Type: 
  Country: None (occurrence: None)
  Receive Date: 20110603
  Receipt Date: 20110524
  Transmission Date: 20111010
  Serious: Yes (Hospitalization)
  Sender: FDA-Public Use
  Company Number: JP-ROCHE-779598

PATIENT
  Sex: Male
  Weight: 65 kg

DRUGS (30)
  1. TOCILIZUMAB [Suspect]
     Route: 041
     Dates: start: 20090709, end: 20090709
  2. TOCILIZUMAB [Suspect]
     Route: 041
     Dates: start: 20080825, end: 20080825
  3. ISONIAZID [Concomitant]
     Dosage: DOSE FORM: PERORAL AGENT
     Route: 048
     Dates: start: 20080701
  4. PYDOXAL [Concomitant]
     Route: 048
     Dates: start: 20080701
  5. BASEN [Concomitant]
     Route: 048
     Dates: start: 20080701
  6. LANSOPRAZOLE [Concomitant]
     Route: 048
     Dates: start: 20080701
  7. TOCILIZUMAB [Suspect]
     Route: 041
     Dates: start: 20091116, end: 20091116
  8. TOCILIZUMAB [Suspect]
     Route: 041
     Dates: start: 20100218, end: 20100218
  9. PREDNISOLONE [Concomitant]
     Dosage: DOSE FORM: PERORAL AGENT
     Route: 048
     Dates: start: 20081204
  10. CELCOX [Concomitant]
     Dosage: DRUG REPORTED AS CELECOX
     Route: 048
  11. TOCILIZUMAB [Suspect]
     Indication: RHEUMATOID ARTHRITIS
     Route: 041
     Dates: start: 20080630, end: 20080630
  12. TOCILIZUMAB [Suspect]
     Route: 041
     Dates: start: 20090903, end: 20090903
  13. RHEUMATREX [Concomitant]
     Route: 048
  14. PREDNISOLONE [Concomitant]
     Dosage: DOSE FORM: PERORAL AGENT
     Route: 048
     Dates: end: 20080619
  15. TOCILIZUMAB [Suspect]
     Route: 041
     Dates: start: 20081204, end: 20081204
  16. TOCILIZUMAB [Suspect]
     Route: 041
     Dates: start: 20100120, end: 20100120
  17. PREDNISOLONE [Concomitant]
     Dosage: DOSE FORM: PERORAL AGENT
     Route: 048
     Dates: start: 20080620, end: 20080727
  18. PREDNISOLONE [Concomitant]
     Dosage: DOSE FORM: PERORAL AGENT
     Route: 048
     Dates: start: 20080728, end: 20080824
  19. FOLIC ACID [Concomitant]
     Route: 048
  20. TOCILIZUMAB [Suspect]
     Route: 041
     Dates: start: 20080728, end: 20080728
  21. TOCILIZUMAB [Suspect]
     Route: 041
     Dates: start: 20081002, end: 20081002
  22. TOCILIZUMAB [Suspect]
     Route: 041
     Dates: start: 20081110, end: 20081110
  23. TOCILIZUMAB [Suspect]
     Route: 041
     Dates: start: 20090810, end: 20090810
  24. TOCILIZUMAB [Suspect]
     Route: 041
     Dates: start: 20091005, end: 20091005
  25. PREDNISOLONE [Concomitant]
     Dosage: DOSE FORM: PERORAL AGENT
     Route: 048
     Dates: start: 20080825, end: 20081109
  26. PREDNISOLONE [Concomitant]
     Dosage: DOSE FORM: PERORAL AGENT
     Route: 048
     Dates: start: 20081110, end: 20081203
  27. FOSAMAX [Concomitant]
     Route: 048
     Dates: start: 20081110
  28. TOCILIZUMAB [Suspect]
     Route: 041
     Dates: start: 20090108, end: 20090101
  29. TOCILIZUMAB [Suspect]
     Route: 041
     Dates: start: 20091217, end: 20091217
  30. BONALON [Concomitant]
     Route: 048
     Dates: end: 20081109

REACTIONS (1)
  - ORGANISING PNEUMONIA [None]
